FAERS Safety Report 5075760-X (Version None)
Quarter: 2006Q3

REPORT INFORMATION
  Report Type: 
  Country: None (occurrence: None)
  Receive Date: 20060807
  Receipt Date: 20060726
  Transmission Date: 20061208
  Serious: Yes (Disabling, Other)
  Sender: FDA-Public Use
  Company Number: 2006092856

PATIENT
  Age: 44 Year
  Sex: Female

DRUGS (1)
  1. LIPITOR [Suspect]
     Indication: BLOOD CHOLESTEROL INCREASED
     Dosage: 10 MG (10 MG, 1 IN 1 D); 5 YRS AGO - STOPPED

REACTIONS (6)
  - BURNING SENSATION [None]
  - DYSSTASIA [None]
  - FATIGUE [None]
  - HYPOAESTHESIA [None]
  - MUSCULAR WEAKNESS [None]
  - PAIN [None]
